FAERS Safety Report 5857377-X (Version None)
Quarter: 2008Q3

REPORT INFORMATION
  Report Type: 
  Country: None (occurrence: None)
  Receive Date: 20080826
  Receipt Date: 20080819
  Transmission Date: 20090109
  Serious: Yes (Other)
  Sender: FDA-Public Use
  Company Number: CO-JNJFOC-20080804780

PATIENT
  Age: 13 Year
  Sex: Male

DRUGS (2)
  1. RISPERDAL CONSTA [Suspect]
     Indication: SCHIZOPHRENIA
     Dosage: 1 AMPULE
     Route: 030
  2. ILLICIT DRUG [Concomitant]
     Route: 065

REACTIONS (1)
  - AGGRESSION [None]
